FAERS Safety Report 13032040 (Version 1)
Quarter: 2016Q4

REPORT INFORMATION
  Report Type: Spontaneous
  Country: US (occurrence: US)
  Receive Date: 20161215
  Receipt Date: 20161215
  Transmission Date: 20170207
  Serious: No
  Sender: FDA-Public Use
  Company Number: US-PFIZER INC-2016570602

PATIENT
  Sex: Female

DRUGS (1)
  1. XELJANZ [Suspect]
     Active Substance: TOFACITINIB CITRATE
     Dosage: 5 MG, UNK

REACTIONS (7)
  - Lasegue^s test positive [Unknown]
  - Joint effusion [Unknown]
  - Crepitations [Unknown]
  - Joint warmth [Unknown]
  - Arthralgia [Unknown]
  - Spinal pain [Unknown]
  - Joint contracture [Unknown]
